FAERS Safety Report 9196980 (Version 1)
Quarter: 2013Q1

REPORT INFORMATION
  Report Type: Spontaneous
  Country: US (occurrence: None)
  Receive Date: 20120709
  Receipt Date: 20120709
  Transmission Date: 20140127
  Serious: No
  Sender: FDA-Public Use
  Company Number: 2012HGS-003611

PATIENT
  Age: 56 Year
  Sex: Female
  Weight: 91.63 kg

DRUGS (15)
  1. BENLYSTA [Suspect]
     Indication: SYSTEMIC LUPUS ERYTHEMATOSUS
     Dosage: 1 IN 28 D, INTRAVENOUS DRIP
     Dates: start: 20120404
  2. CAPOTEN (CAPTOPRIL) (CAPTOPRIL) [Concomitant]
  3. CORGARD (NADOLOL) (NADOLOL) [Concomitant]
  4. PREDNISONE (PREDNISONE) [Concomitant]
  5. PRILOSEC (OMEPRAZOLE) (OMEPRAZOLE) [Concomitant]
  6. DIAZINE (GLICLAZINE) (GLICLAZONE) [Concomitant]
  7. LIPITOR (ATORVASTATIN CALCIUM) (ATORVASTATIN CALCIUM) [Concomitant]
  8. BUSPAR (BUSPIRONE HYDROCHLORIDE) (BUSPIRONE HYDROCHLORIDE) [Concomitant]
  9. PLAQUENIL (HYDROXYCHLOROQUINE SULFATE) (HYDR [Concomitant]
  10. COUMADIN (WARFARIN SODIUM) (WARFARIN SODIUM) [Concomitant]
  11. GLIPIZIDE XL (GLIPIZIDE) (GLIPIZIDE) [Concomitant]
  12. ATIVAN (LORAZEPAM) (LORAZEPAM) [Concomitant]
  13. TYLENOL (PARACETAMOL) (PARACETAMOL) [Concomitant]
  14. BENADRYL (DIPHENHYDRAMINE HYDROCHLORIDE) (DIPHENHYDRAMINE HYDROCHLORIDE) [Concomitant]
  15. RECLAST (ZOLEDRONIC ACID) (ZOLEDRONIC ACID) [Concomitant]

REACTIONS (8)
  - Pain [None]
  - Local swelling [None]
  - Joint swelling [None]
  - Nasal congestion [None]
  - Headache [None]
  - Photophobia [None]
  - Dyspnoea [None]
  - Nausea [None]
